FAERS Safety Report 8847885 (Version 1)
Quarter: 2012Q4

REPORT INFORMATION
  Report Type: 
  Country: US (occurrence: US)
  Receive Date: 20121018
  Receipt Date: 20121018
  Transmission Date: 20130627
  Serious: No
  Sender: FDA-Public Use
  Company Number: US-ROCHE-GNE242291

PATIENT
  Sex: Male
  Weight: 113.5 kg

DRUGS (7)
  1. NUTROPIN AQ [Suspect]
     Indication: HYPOTHALAMO-PITUITARY DISORDER
     Dosage: 0.3 mg, qd
     Route: 058
     Dates: start: 20070430
  2. NUTROPIN AQ [Suspect]
     Indication: DWARFISM
  3. NUTROPIN AQ PEN 10 [Suspect]
     Indication: HYPOTHALAMO-PITUITARY DISORDER
     Route: 065
  4. BENICAR [Suspect]
     Indication: HYPERTENSION
     Dosage: 40 mg, qd
     Route: 048
     Dates: start: 200501
  5. BENICAR [Suspect]
     Dosage: 12.5 mg, qd
     Route: 048
     Dates: start: 200501
  6. UNSPECIFIED INGREDIENT [Concomitant]
     Indication: HYPERTENSION
  7. UNSPECIFIED CONCOMITANT DRUGS [Concomitant]
     Indication: NEUROPATHY PERIPHERAL

REACTIONS (2)
  - Accidental overdose [Not Recovered/Not Resolved]
  - Device malfunction [Unknown]
